FAERS Safety Report 18735020 (Version 1)
Quarter: 2021Q1

REPORT INFORMATION
  Report Type: Spontaneous
  Country: GB (occurrence: GB)
  Receive Date: 20210113
  Receipt Date: 20210113
  Transmission Date: 20210419
  Serious: Yes (Life-Threatening, Hospitalization)
  Sender: FDA-Public Use
  Company Number: GB-MYLANLABS-2021M1001464

PATIENT
  Age: 80 Year
  Sex: Male

DRUGS (2)
  1. GLYCERYL TRINITRATE [Suspect]
     Active Substance: NITROGLYCERIN
     Indication: CHEST PAIN
     Dosage: UNK
     Route: 060
  2. ENOXAPARIN [Suspect]
     Active Substance: ENOXAPARIN
     Indication: PRODUCT USED FOR UNKNOWN INDICATION
     Dosage: 1.5 MILLIGRAM/KILOGRAM

REACTIONS (7)
  - Tachycardia [Recovering/Resolving]
  - Acute kidney injury [Unknown]
  - Cardiac tamponade [Recovering/Resolving]
  - Blood pressure decreased [Recovering/Resolving]
  - Atrial fibrillation [Recovering/Resolving]
  - Drug ineffective [Unknown]
  - Cardiogenic shock [Recovering/Resolving]
